FAERS Safety Report 9720749 (Version 2)
Quarter: 2013Q4

REPORT INFORMATION
  Report Type: Report from Study
  Country: VE (occurrence: VE)
  Receive Date: 20131129
  Receipt Date: 20131209
  Transmission Date: 20140711
  Serious: Yes (Death)
  Sender: FDA-Public Use
  Company Number: PHHY2013VE137479

PATIENT
  Sex: Female

DRUGS (5)
  1. ACLASTA [Suspect]
     Indication: OSTEOPOROSIS
     Dosage: UNK
     Route: 042
     Dates: start: 2008
  2. ACLASTA [Suspect]
     Dosage: UNK
     Route: 042
     Dates: start: 2009
  3. ACLASTA [Suspect]
     Dosage: UNK
     Route: 042
     Dates: start: 2010
  4. ACLASTA [Suspect]
     Dosage: UNK
     Route: 042
     Dates: start: 2011
  5. DIOVAN HCT [Suspect]
     Indication: HYPERTENSION
     Dosage: 80/12.5 MG
     Route: 048
     Dates: start: 2007, end: 2009

REACTIONS (1)
  - Cerebrovascular accident [Fatal]
